FAERS Safety Report 7108046-X (Version None)
Quarter: 2010Q4

REPORT INFORMATION
  Report Type: 
  Country: None (occurrence: None)
  Receive Date: 20101117
  Receipt Date: 20101109
  Transmission Date: 20110411
  Serious: Yes (Life-Threatening, Hospitalization, Other)
  Sender: FDA-Public Use
  Company Number: CH-MPIJNJ-2010-04741

PATIENT

DRUGS (5)
  1. VELCADE [Suspect]
     Indication: MULTIPLE MYELOMA
     Dosage: 2 MG, UNK
     Route: 042
     Dates: start: 20100420, end: 20100528
  2. THALIDOMIDE [Concomitant]
     Dosage: 100 MG, UNK
     Route: 048
     Dates: start: 20100420, end: 20100517
  3. THALIDOMIDE [Concomitant]
     Dosage: 50 MG, UNK
     Route: 048
     Dates: start: 20100518, end: 20100604
  4. THALIDOMIDE [Concomitant]
     Dosage: 50 UNK, UNK
     Dates: start: 20100730
  5. DEXAMETHASONE [Concomitant]
     Dosage: 40 MG, UNK
     Route: 048
     Dates: start: 20100420, end: 20100528

REACTIONS (2)
  - ELECTROCARDIOGRAM ST SEGMENT ELEVATION [None]
  - MYOCARDITIS [None]
